FAERS Safety Report 17949925 (Version 1)
Quarter: 2020Q2

REPORT INFORMATION
  Report Type: Spontaneous
  Country: FR (occurrence: FR)
  Receive Date: 20200625
  Receipt Date: 20200625
  Transmission Date: 20200714
  Serious: Yes (Hospitalization)
  Sender: FDA-Public Use
  Company Number: NVSC2020FR173320

PATIENT
  Age: 49 Year
  Sex: Female
  Weight: 102 kg

DRUGS (4)
  1. TEGRETOL [Suspect]
     Active Substance: CARBAMAZEPINE
     Indication: BIPOLAR DISORDER
     Dosage: 400 MG, QD
     Route: 048
     Dates: start: 20191203, end: 20191231
  2. SULPIRIDE [Suspect]
     Active Substance: SULPIRIDE
     Indication: BIPOLAR DISORDER
     Dosage: 50 MG, QD
     Route: 048
     Dates: start: 20191210, end: 20191213
  3. AMOXICILLINE [Concomitant]
     Active Substance: AMOXICILLIN
     Indication: BRONCHOPNEUMOPATHY
     Dosage: UNK
     Route: 048
     Dates: start: 20191216
  4. IBUPROFENE [Concomitant]
     Active Substance: IBUPROFEN
     Indication: VIRAL INFECTION
     Dosage: UNK
     Route: 048
     Dates: start: 20191213, end: 20191216

REACTIONS (5)
  - Pyrexia [Unknown]
  - Rash morbilliform [Recovering/Resolving]
  - Face oedema [Recovered/Resolved]
  - Cough [Recovered/Resolved]
  - Rash [Recovering/Resolving]

NARRATIVE: CASE EVENT DATE: 20191213
